FAERS Safety Report 19568660 (Version 1)
Quarter: 2021Q3

REPORT INFORMATION
  Report Type: Other
  Country: US (occurrence: US)
  Receive Date: 20210716
  Receipt Date: 20210716
  Transmission Date: 20211014
  Serious: Yes (Hospitalization, Disabling)
  Sender: FDA-Public Use
  Company Number: US-ROCHE-2844245

PATIENT
  Age: 22 Year
  Sex: Female

DRUGS (1)
  1. EVRYSDI [Suspect]
     Active Substance: RISDIPLAM
     Indication: SPINAL MUSCULAR ATROPHY
     Route: 048
     Dates: start: 20210316, end: 20210703

REACTIONS (8)
  - Ill-defined disorder [Unknown]
  - Memory impairment [Recovered/Resolved]
  - Abdominal pain upper [Recovered/Resolved]
  - Crying [Recovered/Resolved]
  - Confusional state [Recovered/Resolved]
  - Hyporesponsive to stimuli [Unknown]
  - Neurological symptom [Unknown]
  - Catatonia [Recovered/Resolved]

NARRATIVE: CASE EVENT DATE: 20210531
